FAERS Safety Report 23657084 (Version 1)
Quarter: 2024Q1

REPORT INFORMATION
  Report Type: Spontaneous
  Country: CA (occurrence: CA)
  Receive Date: 20240321
  Receipt Date: 20240321
  Transmission Date: 20240410
  Serious: Yes (Disabling, Other)
  Sender: FDA-Public Use
  Company Number: CA-STRIDES ARCOLAB LIMITED-2024SP003219

PATIENT
  Age: 6 Month
  Sex: Female

DRUGS (7)
  1. ETOPOSIDE [Suspect]
     Active Substance: ETOPOSIDE
     Indication: Atypical teratoid/rhabdoid tumour of CNS
     Dosage: UNK, CHEMOTHERAPY (DFCI-IRS-III, MODIFED PROTOCOL)
     Route: 065
  2. DOXORUBICIN [Suspect]
     Active Substance: DOXORUBICIN
     Indication: Atypical teratoid/rhabdoid tumour of CNS
     Dosage: UNK, CHEMOTHERAPY (DFCI-IRS-III, MODIFED PROTOCOL)
     Route: 065
  3. METHOTREXATE [Suspect]
     Active Substance: METHOTREXATE
     Indication: Atypical teratoid/rhabdoid tumour of CNS
     Dosage: 15 MILLIGRAM/SQ. METER
     Route: 037
  4. ACTINOMYCIN D [Suspect]
     Active Substance: DACTINOMYCIN
     Indication: Atypical teratoid/rhabdoid tumour of CNS
     Dosage: UNK, CHEMOTHERAPY (DFCI-IRS-III, MODIFED PROTOCOL)
     Route: 065
  5. HYDROCORTISONE [Suspect]
     Active Substance: HYDROCORTISONE
     Indication: Atypical teratoid/rhabdoid tumour of CNS
     Dosage: 30 MILLIGRAM/SQ. METER
     Route: 037
  6. CYTARABINE [Suspect]
     Active Substance: CYTARABINE
     Indication: Atypical teratoid/rhabdoid tumour of CNS
     Dosage: 60 MILLIGRAM/SQ. METER
     Route: 037
  7. ALISERTIB [Concomitant]
     Active Substance: ALISERTIB
     Indication: Atypical teratoid/rhabdoid tumour of CNS
     Dosage: 60 MILLIGRAM/SQ. METER, CYCLICAL (ONCE DAILY FOR 7 DAYS OF A 21 DAY TREATMENT CYCLE) (62 CYCLES)
     Route: 048

REACTIONS (5)
  - Deafness [Recovered/Resolved]
  - Speech disorder developmental [Recovered/Resolved]
  - Hemiparesis [Recovered/Resolved]
  - Drug ineffective [Unknown]
  - Off label use [Unknown]
